FAERS Safety Report 11178509 (Version 4)
Quarter: 2017Q1

REPORT INFORMATION
  Report Type: Spontaneous
  Country: US (occurrence: US)
  Receive Date: 20150610
  Receipt Date: 20170214
  Transmission Date: 20170428
  Serious: Yes (Other)
  Sender: FDA-Public Use
  Company Number: US-TEVA-564570USA

PATIENT
  Age: 68 Year
  Sex: Male
  Weight: 76 kg

DRUGS (19)
  1. FINASTERIDE. [Suspect]
     Active Substance: FINASTERIDE
     Indication: BLOOD PRESSURE INCREASED
     Dosage: 5 MILLIGRAM DAILY;
     Route: 048
     Dates: start: 2014
  2. FINASTERIDE. [Suspect]
     Active Substance: FINASTERIDE
     Indication: PROSTATOMEGALY
  3. ASPIRIN. [Concomitant]
     Active Substance: ASPIRIN
     Indication: PROPHYLAXIS
     Dosage: 81 MILLIGRAM DAILY;
     Route: 048
  4. OMEPRAZOLE. [Concomitant]
     Active Substance: OMEPRAZOLE
     Indication: GASTROOESOPHAGEAL REFLUX DISEASE
     Dosage: 40 MILLIGRAM DAILY;
     Route: 048
  5. LORAZEPAM. [Concomitant]
     Active Substance: LORAZEPAM
     Dosage: .5 MILLIGRAM DAILY; HS
     Route: 048
  6. GABAPENTIN. [Suspect]
     Active Substance: GABAPENTIN
     Indication: NEUROPATHY PERIPHERAL
     Dosage: 300 MILLIGRAM DAILY; AT BEDTIME
     Route: 048
     Dates: start: 2014
  7. PHENYTOIN. [Suspect]
     Active Substance: PHENYTOIN
     Dosage: 200 MILLIGRAM DAILY; AT NIGHT
     Dates: start: 201503
  8. GABAPENTIN. [Suspect]
     Active Substance: GABAPENTIN
     Dosage: 1200 MILLIGRAM DAILY;
     Route: 048
  9. DILANTIN [Suspect]
     Active Substance: PHENYTOIN
     Dosage: 200 MILLIGRAM DAILY; 2 IN PM
  10. LORAZEPAM. [Concomitant]
     Active Substance: LORAZEPAM
     Indication: ANXIETY
     Dosage: 1 MILLIGRAM DAILY; HS
     Route: 048
  11. OXYCODONE [Concomitant]
     Active Substance: OXYCODONE
     Route: 048
  12. FLOMAX [Concomitant]
     Active Substance: TAMSULOSIN HYDROCHLORIDE
     Dosage: .4 MILLIGRAM DAILY; HS
     Route: 048
  13. TAMSULOSIN [Suspect]
     Active Substance: TAMSULOSIN
     Indication: PROSTATOMEGALY
     Dosage: .4 MILLIGRAM DAILY;
     Route: 048
     Dates: start: 2013
  14. FLUDROCORTISONE [Suspect]
     Active Substance: FLUDROCORTISONE
     Indication: BLOOD PRESSURE INCREASED
     Dosage: .1 MILLIGRAM DAILY;
  15. DILANTIN [Suspect]
     Active Substance: PHENYTOIN
     Indication: GENERALISED TONIC-CLONIC SEIZURE
     Dosage: 400 MILLIGRAM DAILY; 2 IN AM
     Route: 048
     Dates: end: 20161031
  16. PHENYTOIN. [Suspect]
     Active Substance: PHENYTOIN
     Indication: SEIZURE
     Dosage: 200 MILLIGRAM DAILY; IN THE MORNING
     Dates: start: 201503
  17. GABAPENTIN. [Suspect]
     Active Substance: GABAPENTIN
     Dosage: 100 MILLIGRAM DAILY; AT BEDTIME AS NEEDED
     Route: 048
  18. DILANTIN [Suspect]
     Active Substance: PHENYTOIN
     Dosage: AT BEDTIME
     Route: 048
     Dates: end: 201503
  19. KEPPRA [Concomitant]
     Active Substance: LEVETIRACETAM
     Dosage: 1000 MILLIGRAM DAILY;
     Route: 048

REACTIONS (11)
  - Asthenia [Recovered/Resolved]
  - Drug dose omission [Recovered/Resolved]
  - Drug effect decreased [Unknown]
  - Skin cancer [Recovering/Resolving]
  - Myalgia [Recovered/Resolved]
  - Insomnia [Unknown]
  - Seizure [Unknown]
  - Neuropathy peripheral [Unknown]
  - Tooth extraction [Unknown]
  - Pain [Recovered/Resolved]
  - Weight decreased [Unknown]

NARRATIVE: CASE EVENT DATE: 2014
